FAERS Safety Report 14310908 (Version 1)
Quarter: 2017Q4

REPORT INFORMATION
  Report Type: Spontaneous
  Country: LB (occurrence: LB)
  Receive Date: 20171221
  Receipt Date: 20171221
  Transmission Date: 20180321
  Serious: Yes (Death)
  Sender: FDA-Public Use
  Company Number: PHHY2017LB190035

PATIENT
  Sex: Male

DRUGS (2)
  1. REVOLADE [Suspect]
     Active Substance: ELTROMBOPAG
     Indication: THROMBOCYTOPENIA
  2. REVOLADE [Suspect]
     Active Substance: ELTROMBOPAG
     Indication: LUNG NEOPLASM MALIGNANT
     Dosage: 25 MG, QD
     Route: 048

REACTIONS (3)
  - Haemorrhage intracranial [Fatal]
  - Bone marrow failure [Fatal]
  - Product use in unapproved indication [Unknown]
